FAERS Safety Report 6475885-8 (Version None)
Quarter: 2009Q4

REPORT INFORMATION
  Report Type: 
  Country: None (occurrence: None)
  Receive Date: 20091204
  Receipt Date: 20090107
  Transmission Date: 20100525
  Serious: No
  Sender: FDA-Public Use
  Company Number: US-AMGEN-KDL327306

PATIENT
  Sex: Female

DRUGS (1)
  1. ENBREL [Suspect]
     Indication: RHEUMATOID ARTHRITIS
     Route: 058
     Dates: start: 20070405

REACTIONS (8)
  - ABDOMINAL DISCOMFORT [None]
  - DIARRHOEA [None]
  - DIZZINESS [None]
  - HEADACHE [None]
  - NAUSEA [None]
  - PAIN [None]
  - PYREXIA [None]
  - VOMITING [None]
